FAERS Safety Report 18733608 (Version 1)
Quarter: 2021Q1

REPORT INFORMATION
  Report Type: Report from Study
  Country: GB (occurrence: GB)
  Receive Date: 20210113
  Receipt Date: 20210113
  Transmission Date: 20210419
  Serious: Yes (Other)
  Sender: FDA-Public Use
  Company Number: GB-JNJFOC-20210108583

PATIENT

DRUGS (1)
  1. STELARA [Suspect]
     Active Substance: USTEKINUMAB
     Indication: CROHN^S DISEASE
     Route: 058

REACTIONS (14)
  - Migraine [Unknown]
  - Therapeutic response decreased [Unknown]
  - Cardiac failure congestive [Unknown]
  - Ascites [Unknown]
  - Arthralgia [Unknown]
  - Periorbital cellulitis [Unknown]
  - Fatigue [Unknown]
  - Off label use [Unknown]
  - Staphylococcal infection [Unknown]
  - Pancreatitis [Unknown]
  - Pneumonia [Unknown]
  - Hypersensitivity [Unknown]
  - Clostridium difficile infection [Unknown]
  - Product use issue [Unknown]
